FAERS Safety Report 5834457-6 (Version None)
Quarter: 2008Q3

REPORT INFORMATION
  Report Type: 
  Country: None (occurrence: None)
  Receive Date: 20080805
  Receipt Date: 20080801
  Transmission Date: 20090109
  Serious: Yes (Other)
  Sender: FDA-Public Use
  Company Number: AU-BOEHRINGER INGELHEIM GMBH, GERMANY-2007-BP-07651AU

PATIENT
  Age: 70 Year
  Sex: Male

DRUGS (4)
  1. MOBIC [Suspect]
     Indication: OSTEOARTHRITIS
     Route: 048
     Dates: start: 20070310, end: 20070517
  2. OTHER STUDY DRUG [Suspect]
     Indication: OSTEOARTHRITIS
     Dates: start: 20070219, end: 20070517
  3. PANAMAX [Concomitant]
  4. PRESSIN [Concomitant]

REACTIONS (1)
  - TRANSIENT ISCHAEMIC ATTACK [None]
